FAERS Safety Report 23612553 (Version 1)
Quarter: 2024Q1

REPORT INFORMATION
  Report Type: Spontaneous
  Country: US (occurrence: US)
  Receive Date: 20240308
  Receipt Date: 20240308
  Transmission Date: 20240409
  Serious: No
  Sender: FDA-Public Use
  Company Number: US-PFIZER INC-202400058382

PATIENT
  Sex: Female

DRUGS (1)
  1. PAXLOVID [Suspect]
     Active Substance: NIRMATRELVIR\RITONAVIR
     Dosage: UNK

REACTIONS (6)
  - Vomiting [Unknown]
  - Diarrhoea [Unknown]
  - Insomnia [Unknown]
  - Abdominal pain lower [Unknown]
  - Defaecation urgency [Unknown]
  - Malaise [Unknown]
